FAERS Safety Report 9362885 (Version 1)
Quarter: 2013Q2

REPORT INFORMATION
  Report Type: Spontaneous
  Country: US (occurrence: None)
  Receive Date: 20130621
  Receipt Date: 20130621
  Transmission Date: 20140414
  Serious: Yes (Life-Threatening)
  Sender: FDA-Public Use
  Company Number: None

PATIENT
  Sex: Male
  Weight: 113.85 kg

DRUGS (2)
  1. NITROSTAT [Suspect]
     Indication: CARDIAC DISORDER
     Route: 048
     Dates: start: 2009
  2. IBUPROFEN [Concomitant]

REACTIONS (2)
  - Drug ineffective [None]
  - Economic problem [None]
